FAERS Safety Report 6206128-8 (Version None)
Quarter: 2009Q2

REPORT INFORMATION
  Report Type: 
  Country: None (occurrence: None)
  Receive Date: 20090526
  Receipt Date: 20090518
  Transmission Date: 20091009
  Serious: Yes (Death, Hospitalization)
  Sender: FDA-Public Use
  Company Number: 2008AL008239

PATIENT
  Sex: Male

DRUGS (1)
  1. DIGOXIN [Suspect]
     Indication: HEART RATE IRREGULAR
     Dosage: 0.125MG, QOD, PO
     Route: 048
     Dates: start: 20080116

REACTIONS (8)
  - ABASIA [None]
  - ACTIVITIES OF DAILY LIVING IMPAIRED [None]
  - CARDIAC FAILURE CONGESTIVE [None]
  - DIZZINESS [None]
  - FLUID RETENTION [None]
  - HYPOTENSION [None]
  - NAUSEA [None]
  - VOMITING [None]
